FAERS Safety Report 5350434-6 (Version None)
Quarter: 2007Q2

REPORT INFORMATION
  Report Type: 
  Country: None (occurrence: None)
  Receive Date: 20070605
  Receipt Date: 20070605
  Transmission Date: 20071010
  Serious: Yes (Other)
  Sender: FDA-Public Use
  Company Number: None

PATIENT
  Sex: Male
  Weight: 65.7716 kg

DRUGS (1)
  1. TOPAMAX [Suspect]
     Indication: ESSENTIAL TREMOR
     Dosage: 1 PILL 30 MG DAILY PO
     Route: 048

REACTIONS (3)
  - ABDOMINAL PAIN [None]
  - GALLBLADDER PAIN [None]
  - STOMACH DISCOMFORT [None]
